FAERS Safety Report 13647715 (Version 1)
Quarter: 2017Q2

REPORT INFORMATION
  Report Type: Spontaneous
  Country: NL (occurrence: NL)
  Receive Date: 20170613
  Receipt Date: 20170613
  Transmission Date: 20170830
  Serious: Yes (Hospitalization)
  Sender: FDA-Public Use
  Company Number: NL-TEVA-776780ACC

PATIENT
  Age: 65 Year
  Sex: Female

DRUGS (3)
  1. ADALIMUMAB INJECTIE [Suspect]
     Active Substance: ADALIMUMAB
     Indication: RHEUMATOID ARTHRITIS
     Dosage: 40MG ONCE EVERY THREE WEEKS
     Route: 058
     Dates: start: 20161004, end: 20170105
  2. FOLIUMZUUR [Concomitant]
     Active Substance: FOLIC ACID
     Route: 048
     Dates: start: 20030305
  3. METHOTREXATE. [Suspect]
     Active Substance: METHOTREXATE
     Dosage: 20MG ONCE WEEKLY
     Route: 058
     Dates: start: 20120920

REACTIONS (1)
  - Erysipelas [Recovered/Resolved]

NARRATIVE: CASE EVENT DATE: 20170118
